FAERS Safety Report 7803257-X (Version None)
Quarter: 2011Q4

REPORT INFORMATION
  Report Type: 
  Country: None (occurrence: None)
  Receive Date: 20111005
  Receipt Date: 20110926
  Transmission Date: 20120403
  Serious: Yes (Hospitalization, Other)
  Sender: FDA-Public Use
  Company Number: 20108649

PATIENT
  Sex: Male

DRUGS (1)
  1. LIORESAL [Suspect]
     Indication: MUSCLE SPASTICITY
     Dosage: DAILY, INTRATHECAL
     Route: 037

REACTIONS (7)
  - ABNORMAL BEHAVIOUR [None]
  - COMPLICATION OF DEVICE INSERTION [None]
  - APPLICATION SITE SCAR [None]
  - NERVOUS SYSTEM DISORDER [None]
  - GENERAL PHYSICAL HEALTH DETERIORATION [None]
  - DRUG EFFECT DECREASED [None]
  - DEVICE DISLOCATION [None]
